FAERS Safety Report 4407826-9 (Version None)
Quarter: 2004Q3

REPORT INFORMATION
  Report Type: 
  Country: None (occurrence: None)
  Receive Date: 20040726
  Receipt Date: 20040609
  Transmission Date: 20050211
  Serious: Yes (Other)
  Sender: FDA-Public Use
  Company Number: ES-GLAXOSMITHKLINE-B0335716A

PATIENT
  Age: 39 Year
  Sex: Male

DRUGS (3)
  1. ZYNTABAC [Suspect]
     Dosage: 300MG PER DAY
     Route: 048
     Dates: start: 20040602, end: 20040609
  2. SERTRALINE HCL [Concomitant]
     Indication: OBSESSIVE-COMPULSIVE DISORDER
     Dosage: 200MG PER DAY
     Route: 048
     Dates: start: 20040602
  3. TOFRANIL [Concomitant]

REACTIONS (9)
  - AGGRESSION [None]
  - CONFUSIONAL STATE [None]
  - DIFFICULTY IN WALKING [None]
  - DISORIENTATION [None]
  - DRUG INTERACTION [None]
  - DYSPHORIA [None]
  - HEADACHE [None]
  - ILLOGICAL THINKING [None]
  - IRRITABILITY [None]
